FAERS Safety Report 9855254 (Version 2)
Quarter: 2014Q1

REPORT INFORMATION
  Report Type: Spontaneous
  Country: IE (occurrence: IE)
  Receive Date: 20140130
  Receipt Date: 20140130
  Transmission Date: 20141002
  Serious: Yes (Other)
  Sender: FDA-Public Use
  Company Number: IE-ROCHE-1335446

PATIENT
  Age: 82 Year
  Sex: Female

DRUGS (5)
  1. AVASTIN [Suspect]
     Indication: AGE-RELATED MACULAR DEGENERATION
     Dosage: MOST RECENT DOSE ON 19/DEC/2013
     Route: 050
     Dates: start: 201305
  2. AVASTIN [Suspect]
     Route: 065
     Dates: start: 20131011
  3. AVASTIN [Suspect]
     Route: 065
     Dates: start: 20131115
  4. AVASTIN [Suspect]
     Route: 065
     Dates: start: 20131219
  5. BETADINE [Suspect]
     Indication: PRODUCT USED FOR UNKNOWN INDICATION
     Route: 065

REACTIONS (2)
  - Eye pruritus [Recovered/Resolved]
  - Dermatitis contact [Recovered/Resolved]
